FAERS Safety Report 20328206 (Version 2)
Quarter: 2022Q1

REPORT INFORMATION
  Report Type: Spontaneous
  Country: IT (occurrence: IT)
  Receive Date: 20220112
  Receipt Date: 20220316
  Transmission Date: 20220423
  Serious: Yes (Hospitalization)
  Sender: FDA-Public Use
  Company Number: IT-ROCHE-2913831

PATIENT
  Age: 69 Year
  Sex: Female
  Weight: 70 kg

DRUGS (38)
  1. DOXORUBICIN HYDROCHLORIDE [Suspect]
     Active Substance: DOXORUBICIN HYDROCHLORIDE
     Indication: Non-Hodgkin^s lymphoma refractory
     Dosage: 50 MG/M2, EVERY 3 WEEKS
     Route: 042
     Dates: start: 20210503
  2. DOXORUBICIN HYDROCHLORIDE [Suspect]
     Active Substance: DOXORUBICIN HYDROCHLORIDE
     Indication: Diffuse large B-cell lymphoma
  3. RITUXIMAB [Suspect]
     Active Substance: RITUXIMAB
     Indication: Non-Hodgkin^s lymphoma refractory
     Dosage: 375 MG/M2, EVERY 3 WEEKS
     Route: 041
     Dates: start: 20210503
  4. RITUXIMAB [Suspect]
     Active Substance: RITUXIMAB
     Indication: Diffuse large B-cell lymphoma
  5. VINCRISTINE SULFATE [Suspect]
     Active Substance: VINCRISTINE SULFATE
     Indication: Non-Hodgkin^s lymphoma refractory
     Dosage: 1.4 MG/M2, EVERY 3 WEEKS
     Route: 042
     Dates: start: 20210503
  6. VINCRISTINE SULFATE [Suspect]
     Active Substance: VINCRISTINE SULFATE
     Indication: Diffuse large B-cell lymphoma
  7. METHYLPREDNISOLONE [Suspect]
     Active Substance: METHYLPREDNISOLONE
     Indication: Diffuse large B-cell lymphoma
     Dosage: 80 MG
     Route: 048
     Dates: start: 20210503
  8. METHYLPREDNISOLONE [Suspect]
     Active Substance: METHYLPREDNISOLONE
     Indication: Non-Hodgkin^s lymphoma refractory
     Dosage: 80 MG
     Route: 048
     Dates: start: 20210901
  9. CYCLOPHOSPHAMIDE [Suspect]
     Active Substance: CYCLOPHOSPHAMIDE
     Indication: Diffuse large B-cell lymphoma
     Dosage: 750 MG/M2, EVERY 3 WEEKS
     Route: 042
     Dates: start: 20210503
  10. CYCLOPHOSPHAMIDE [Suspect]
     Active Substance: CYCLOPHOSPHAMIDE
     Indication: Non-Hodgkin^s lymphoma refractory
  11. PREDNISONE [Suspect]
     Active Substance: PREDNISONE
     Indication: Diffuse large B-cell lymphoma
     Dosage: 100 MG
     Route: 048
     Dates: start: 20210504
  12. PREDNISONE [Suspect]
     Active Substance: PREDNISONE
     Indication: Non-Hodgkin^s lymphoma refractory
  13. GLOFITAMAB [Suspect]
     Active Substance: GLOFITAMAB
     Indication: Non-Hodgkin^s lymphoma refractory
     Dosage: 2.5 MG, EVERY 3 WEEKS
     Route: 042
     Dates: start: 20210603
  14. OMEPRAZOLE [Concomitant]
     Active Substance: OMEPRAZOLE
     Indication: Gastritis
     Dosage: UNK
     Dates: start: 20210428
  15. SIMVASTATIN [Concomitant]
     Active Substance: SIMVASTATIN
     Indication: Dyslipidaemia
     Dosage: UNK
  16. LOBIDIUR [Concomitant]
     Active Substance: HYDROCHLOROTHIAZIDE\NEBIVOLOL HYDROCHLORIDE
     Indication: Hypertension
     Dosage: UNK
  17. ALLOPURINOL [Concomitant]
     Active Substance: ALLOPURINOL
     Indication: Prophylaxis
     Dosage: UNK
     Dates: start: 20210428
  18. DIOSMIN\HESPERIDIN [Concomitant]
     Active Substance: DIOSMIN\HESPERIDIN
     Indication: Oedema peripheral
     Dosage: UNK
     Dates: start: 20210603
  19. FILGRASTIM [Concomitant]
     Active Substance: FILGRASTIM
     Indication: Neutropenia
     Dosage: UNK
     Dates: start: 20210813, end: 20210816
  20. ESOMEPRAZOLE [Concomitant]
     Active Substance: ESOMEPRAZOLE
     Indication: Gastrointestinal disorder prophylaxis
     Dosage: UNK
  21. ACETAMINOPHEN [Concomitant]
     Active Substance: ACETAMINOPHEN
     Dosage: 1000 MG
     Route: 048
     Dates: start: 20210818, end: 20210818
  22. ACETAMINOPHEN [Concomitant]
     Active Substance: ACETAMINOPHEN
     Dosage: 1000 MG
     Route: 042
     Dates: start: 20210901, end: 20210901
  23. ACETAMINOPHEN [Concomitant]
     Active Substance: ACETAMINOPHEN
     Dosage: 1000 MG
     Route: 048
     Dates: start: 20210908, end: 20210908
  24. ERYTHROPOIETIN [Concomitant]
     Active Substance: ERYTHROPOIETIN
     Indication: Haemoglobin decreased
     Dosage: UNK
     Dates: start: 20210608
  25. DEXAMETHASONE [Concomitant]
     Active Substance: DEXAMETHASONE
     Dosage: 20 MG
     Route: 042
     Dates: start: 20210908, end: 20210908
  26. DEXAMETHASONE [Concomitant]
     Active Substance: DEXAMETHASONE
     Dosage: 80 MG
     Route: 042
     Dates: start: 20210818, end: 20210818
  27. LEVOSULPIRIDE [Concomitant]
     Active Substance: LEVOSULPIRIDE
     Indication: Nausea
     Dosage: UNK
     Dates: start: 20210727
  28. GRANULOCYTE COLONY-STIMULATING FACTOR NOS [Concomitant]
     Active Substance: GRANULOCYTE COLONY-STIMULATING FACTOR NOS
     Dosage: UNK
     Dates: start: 20210903, end: 20210905
  29. CHLORPHENIRAMINE MALEATE [Concomitant]
     Active Substance: CHLORPHENIRAMINE MALEATE
     Dosage: 10 MG
     Route: 042
     Dates: start: 20210901, end: 20210901
  30. CHLORPHENIRAMINE MALEATE [Concomitant]
     Active Substance: CHLORPHENIRAMINE MALEATE
     Dosage: 10 MG
     Route: 042
     Dates: start: 20210818, end: 20210818
  31. CHLORPHENIRAMINE MALEATE [Concomitant]
     Active Substance: CHLORPHENIRAMINE MALEATE
     Dosage: 10 MG
     Route: 042
     Dates: start: 20210908, end: 20210908
  32. BACTRIM [Concomitant]
     Active Substance: SULFAMETHOXAZOLE\TRIMETHOPRIM
     Indication: Pneumocystis jirovecii infection
     Dosage: UNK
     Dates: start: 20210430
  33. CLOREXIDINA [Concomitant]
     Indication: Odynophagia
     Dosage: UNK
     Dates: start: 20210525
  34. MYCOSTATIN [Concomitant]
     Active Substance: NYSTATIN
     Indication: Prophylaxis
     Dosage: UNK
     Dates: start: 20210430
  35. ENOXAPARIN SODIUM [Concomitant]
     Active Substance: ENOXAPARIN SODIUM
     Indication: Venous thrombosis
     Dosage: UNK
     Dates: start: 20210630
  36. CYMBALTA [Concomitant]
     Active Substance: DULOXETINE HYDROCHLORIDE
     Indication: Depression
     Dosage: UNK
  37. TRAMADOL [Concomitant]
     Active Substance: TRAMADOL
     Indication: Pain in extremity
     Dosage: UNK
     Dates: start: 20210630
  38. MOVICOL [Concomitant]
     Active Substance: POLYETHYLENE GLYCOL 3350\POTASSIUM CHLORIDE\SODIUM BICARBONATE\SODIUM CHLORIDE
     Indication: Constipation
     Dosage: UNK
     Dates: start: 20210727

REACTIONS (1)
  - Febrile neutropenia [Recovered/Resolved]

NARRATIVE: CASE EVENT DATE: 20210911
